FAERS Safety Report 9489381 (Version 2)
Quarter: 2014Q1

REPORT INFORMATION
  Report Type: Spontaneous
  Country: US (occurrence: US)
  Receive Date: 20130829
  Receipt Date: 20140311
  Transmission Date: 20141002
  Serious: Yes (Other)
  Sender: FDA-Public Use
  Company Number: PHHY2013US093568

PATIENT
  Age: 66 Year
  Sex: Female

DRUGS (4)
  1. BACLOFEN INTRATHECAL [Suspect]
     Indication: PAIN
     Dosage: 80.11 UG, DAY
     Route: 037
  2. CLONIDINE [Suspect]
     Dosage: 80.11 UG, DAILY
     Route: 037
  3. DILAUDID [Suspect]
     Dosage: 1.602 MG, DAY
     Route: 037
  4. BUPIVACAINE [Suspect]
     Dosage: 16.022 MG, DAY
     Route: 037

REACTIONS (2)
  - Incision site haemorrhage [Recovered/Resolved]
  - Implant site haematoma [Recovered/Resolved]
